FAERS Safety Report 6511622-6 (Version None)
Quarter: 2009Q4

REPORT INFORMATION
  Report Type: 
  Country: None (occurrence: None)
  Receive Date: 20091222
  Receipt Date: 20090429
  Transmission Date: 20100525
  Serious: No
  Sender: FDA-Public Use
  Company Number: US-ASTRAZENECA-2009UW10739

PATIENT
  Age: 61 Year
  Sex: Female
  Weight: 65.8 kg

DRUGS (5)
  1. CRESTOR [Suspect]
     Route: 048
  2. TOPROL-XL [Concomitant]
     Indication: HYPERTENSION
  3. ALTACE [Concomitant]
     Indication: HYPERTENSION
  4. BABY ASPIRIN [Concomitant]
  5. TRANXENE [Concomitant]
     Indication: ANXIETY

REACTIONS (1)
  - LIPIDS INCREASED [None]
